FAERS Safety Report 8895636 (Version 3)
Quarter: 2016Q4

REPORT INFORMATION
  Report Type: Spontaneous
  Country: US (occurrence: US)
  Receive Date: 20121108
  Receipt Date: 20161221
  Transmission Date: 20170207
  Serious: Yes (Hospitalization, Other)
  Sender: FDA-Public Use
  Company Number: US-ASTRAZENECA-2012SE83327

PATIENT
  Age: 52 Year
  Sex: Male
  Weight: 96.6 kg

DRUGS (51)
  1. SEROQUEL XR [Suspect]
     Active Substance: QUETIAPINE FUMARATE
     Indication: POST-TRAUMATIC STRESS DISORDER
     Route: 048
  2. SEROQUEL XR [Suspect]
     Active Substance: QUETIAPINE FUMARATE
     Indication: SLEEP DISORDER
     Dosage: 400 MG, EVERY OTHER DAY
     Route: 048
  3. DEPAKOTE [Concomitant]
     Active Substance: DIVALPROEX SODIUM
     Indication: SCHIZOPHRENIFORM DISORDER
     Route: 048
     Dates: start: 2011
  4. FOLIC ACID. [Concomitant]
     Active Substance: FOLIC ACID
     Indication: ASTHENIA
     Dosage: 400, DAILY
     Route: 048
  5. SEROQUEL XR [Suspect]
     Active Substance: QUETIAPINE FUMARATE
     Indication: HALLUCINATION
     Route: 048
  6. SEROQUEL XR [Suspect]
     Active Substance: QUETIAPINE FUMARATE
     Indication: SCHIZOPHRENIFORM DISORDER
     Dosage: 400 MG, EVERY OTHER DAY
     Route: 048
  7. SEROQUEL XR [Suspect]
     Active Substance: QUETIAPINE FUMARATE
     Indication: HALLUCINATION
     Dosage: HALF TABLET
     Route: 048
  8. SEROQUEL XR [Suspect]
     Active Substance: QUETIAPINE FUMARATE
     Indication: BIPOLAR DISORDER
     Dosage: HALF TABLET
     Route: 048
  9. SEROQUEL XR [Suspect]
     Active Substance: QUETIAPINE FUMARATE
     Indication: ANXIETY DISORDER
     Dosage: HALF TABLET
     Route: 048
  10. VITAMIN D [Concomitant]
     Active Substance: CHOLECALCIFEROL
     Indication: SUPPLEMENTATION THERAPY
     Route: 048
  11. POTASSIUM CHLORIDE. [Concomitant]
     Active Substance: POTASSIUM CHLORIDE
     Indication: CARDIOVASCULAR EVENT PROPHYLAXIS
     Dates: start: 2015
  12. SEROQUEL XR [Suspect]
     Active Substance: QUETIAPINE FUMARATE
     Indication: HALLUCINATION
     Route: 048
  13. SEROQUEL XR [Suspect]
     Active Substance: QUETIAPINE FUMARATE
     Indication: SCHIZOPHRENIFORM DISORDER
     Route: 048
  14. SEROQUEL XR [Suspect]
     Active Substance: QUETIAPINE FUMARATE
     Indication: POST-TRAUMATIC STRESS DISORDER
     Route: 048
     Dates: start: 2012
  15. SEROQUEL XR [Suspect]
     Active Substance: QUETIAPINE FUMARATE
     Indication: BIPOLAR DISORDER
     Route: 048
     Dates: start: 2012
  16. SEROQUEL XR [Suspect]
     Active Substance: QUETIAPINE FUMARATE
     Indication: SCHIZOPHRENIFORM DISORDER
     Dosage: HALF TABLET
     Route: 048
  17. SEROQUEL XR [Suspect]
     Active Substance: QUETIAPINE FUMARATE
     Indication: BIPOLAR DISORDER
     Route: 048
  18. SEROQUEL XR [Suspect]
     Active Substance: QUETIAPINE FUMARATE
     Indication: HALLUCINATION
     Route: 048
     Dates: start: 2012
  19. SEROQUEL XR [Suspect]
     Active Substance: QUETIAPINE FUMARATE
     Indication: SLEEP DISORDER
     Route: 048
     Dates: start: 2012
  20. SEROQUEL XR [Suspect]
     Active Substance: QUETIAPINE FUMARATE
     Indication: ANXIETY DISORDER
     Dosage: 400 MG, EVERY OTHER DAY
     Route: 048
  21. SEROQUEL XR [Suspect]
     Active Substance: QUETIAPINE FUMARATE
     Indication: POST-TRAUMATIC STRESS DISORDER
     Dosage: HALF TABLET
     Route: 048
  22. SEROQUEL XR [Suspect]
     Active Substance: QUETIAPINE FUMARATE
     Indication: SLEEP DISORDER
     Dosage: HALF TABLET
     Route: 048
  23. DEPAKOTE [Concomitant]
     Active Substance: DIVALPROEX SODIUM
     Indication: HALLUCINATION
     Route: 048
     Dates: start: 2011
  24. HALDOL [Concomitant]
     Active Substance: HALOPERIDOL
     Indication: HALLUCINATION
     Route: 048
     Dates: start: 2011
  25. HALDOL [Concomitant]
     Active Substance: HALOPERIDOL
     Indication: MAJOR DEPRESSION
     Route: 048
     Dates: start: 2011
  26. HALDOL [Concomitant]
     Active Substance: HALOPERIDOL
     Indication: POST-TRAUMATIC STRESS DISORDER
     Route: 048
     Dates: start: 2011
  27. FOLIC ACID. [Concomitant]
     Active Substance: FOLIC ACID
     Indication: SUPPLEMENTATION THERAPY
     Dosage: 400, DAILY
     Route: 048
  28. SEROQUEL XR [Suspect]
     Active Substance: QUETIAPINE FUMARATE
     Indication: SLEEP DISORDER
     Route: 048
  29. SEROQUEL XR [Suspect]
     Active Substance: QUETIAPINE FUMARATE
     Indication: SLEEP DISORDER
     Route: 048
  30. SEROQUEL XR [Suspect]
     Active Substance: QUETIAPINE FUMARATE
     Indication: HALLUCINATION
     Dosage: 400 MG, EVERY OTHER DAY
     Route: 048
  31. SEROQUEL XR [Suspect]
     Active Substance: QUETIAPINE FUMARATE
     Indication: POST-TRAUMATIC STRESS DISORDER
     Dosage: 400 MG, EVERY OTHER DAY
     Route: 048
  32. DEPAKOTE [Concomitant]
     Active Substance: DIVALPROEX SODIUM
     Indication: POST-TRAUMATIC STRESS DISORDER
     Route: 048
     Dates: start: 2011
  33. DEPAKOTE [Concomitant]
     Active Substance: DIVALPROEX SODIUM
     Indication: BIPOLAR DISORDER
     Route: 048
     Dates: start: 2011
  34. VITAMIN B12 [Concomitant]
     Active Substance: CYANOCOBALAMIN
     Indication: ASTHENIA
     Route: 048
  35. LASIX [Concomitant]
     Active Substance: FUROSEMIDE
     Indication: CARDIOVASCULAR EVENT PROPHYLAXIS
     Dates: start: 2015
  36. SEROQUEL XR [Suspect]
     Active Substance: QUETIAPINE FUMARATE
     Indication: ANXIETY DISORDER
     Route: 048
  37. SEROQUEL XR [Suspect]
     Active Substance: QUETIAPINE FUMARATE
     Indication: ANXIETY DISORDER
     Route: 048
  38. SEROQUEL XR [Suspect]
     Active Substance: QUETIAPINE FUMARATE
     Indication: SCHIZOPHRENIFORM DISORDER
     Route: 048
     Dates: start: 2012
  39. SEROQUEL XR [Suspect]
     Active Substance: QUETIAPINE FUMARATE
     Indication: ANXIETY DISORDER
     Route: 048
     Dates: start: 2012
  40. SEROQUEL XR [Suspect]
     Active Substance: QUETIAPINE FUMARATE
     Indication: BIPOLAR DISORDER
     Dosage: 400 MG, EVERY OTHER DAY
     Route: 048
  41. HALDOL [Concomitant]
     Active Substance: HALOPERIDOL
     Indication: SCHIZOPHRENIFORM DISORDER
     Route: 048
     Dates: start: 2011
  42. VITAMIN B12 [Concomitant]
     Active Substance: CYANOCOBALAMIN
     Indication: SUPPLEMENTATION THERAPY
     Route: 048
  43. PLAVIX [Concomitant]
     Active Substance: CLOPIDOGREL BISULFATE
     Indication: CARDIOVASCULAR EVENT PROPHYLAXIS
     Dates: start: 201604
  44. NEXIUM [Suspect]
     Active Substance: ESOMEPRAZOLE MAGNESIUM
     Route: 048
  45. SEROQUEL XR [Suspect]
     Active Substance: QUETIAPINE FUMARATE
     Indication: BIPOLAR DISORDER
     Route: 048
  46. DEPAKOTE [Concomitant]
     Active Substance: DIVALPROEX SODIUM
     Indication: MAJOR DEPRESSION
     Route: 048
     Dates: start: 2011
  47. HALDOL [Concomitant]
     Active Substance: HALOPERIDOL
     Indication: BIPOLAR DISORDER
     Route: 048
     Dates: start: 2011
  48. VITAMIN D [Concomitant]
     Active Substance: CHOLECALCIFEROL
     Indication: ASTHENIA
     Route: 048
  49. BENZTROPINE [Concomitant]
     Active Substance: BENZTROPINE
  50. SEROQUEL XR [Suspect]
     Active Substance: QUETIAPINE FUMARATE
     Indication: POST-TRAUMATIC STRESS DISORDER
     Route: 048
  51. SEROQUEL XR [Suspect]
     Active Substance: QUETIAPINE FUMARATE
     Indication: SCHIZOPHRENIFORM DISORDER
     Route: 048

REACTIONS (20)
  - Dyskinesia [Recovered/Resolved]
  - Hypersomnia [Unknown]
  - Cardiac disorder [Unknown]
  - Bipolar disorder [Unknown]
  - Insomnia [Unknown]
  - Off label use [Unknown]
  - Road traffic accident [Unknown]
  - Irritability [Unknown]
  - Intentional product misuse [Unknown]
  - Head injury [Unknown]
  - Restlessness [Unknown]
  - Drug dose omission [Unknown]
  - Stress [Unknown]
  - Product use issue [Unknown]
  - Diabetes mellitus [Unknown]
  - Schizophrenia [Unknown]
  - Blindness [Unknown]
  - Myocardial infarction [Unknown]
  - Post-traumatic stress disorder [Unknown]
  - Agitation [Unknown]

NARRATIVE: CASE EVENT DATE: 2005
